FAERS Safety Report 5628897-8 (Version None)
Quarter: 2008Q1

REPORT INFORMATION
  Report Type: 
  Country: None (occurrence: None)
  Receive Date: 20080214
  Receipt Date: 20080204
  Transmission Date: 20080703
  Serious: Yes (Disabling)
  Sender: FDA-Public Use
  Company Number: M-08-0117

PATIENT
  Age: 87 Year
  Sex: Female
  Weight: 43.9989 kg

DRUGS (11)
  1. PACERONE [Suspect]
     Indication: ATRIAL FIBRILLATION
     Dosage: 200 MG, QD, PO
     Route: 048
     Dates: start: 20080131
  2. PACERONE [Suspect]
     Indication: ATRIAL FIBRILLATION
     Dosage: 400 MG, QD, PO
     Route: 048
  3. PACERONE [Suspect]
     Indication: ATRIAL FIBRILLATION
     Dosage: 800 MG, QD, PO
     Route: 048
     Dates: start: 20080114, end: 20080128
  4. COUMADIN [Suspect]
     Dosage: 5 MG, QD, PO
     Route: 048
     Dates: start: 20080203
  5. COUMADIN [Suspect]
     Dosage: 5 MG, QD, PO
     Route: 048
     Dates: end: 20080130
  6. SYNTHROID [Concomitant]
  7. HYDROCHLOROTHIAZIDE [Concomitant]
  8. POTASSIUM CHLORIDE [Concomitant]
  9. TOPROL-XL [Concomitant]
  10. BENAZEPRIL HYDROCHLORIDE [Concomitant]
  11. XALATAN [Concomitant]

REACTIONS (7)
  - ASTHENIA [None]
  - BLOOD GLUCOSE INCREASED [None]
  - BLOOD POTASSIUM DECREASED [None]
  - DECREASED ACTIVITY [None]
  - ILL-DEFINED DISORDER [None]
  - INTERNATIONAL NORMALISED RATIO INCREASED [None]
  - TREMOR [None]
